FAERS Safety Report 4831268-5 (Version None)
Quarter: 2005Q4

REPORT INFORMATION
  Report Type: 
  Country: None (occurrence: None)
  Receive Date: 20051116
  Receipt Date: 20051107
  Transmission Date: 20060501
  Serious: Yes (Hospitalization)
  Sender: FDA-Public Use
  Company Number: HQWYE467009NOV05

PATIENT
  Age: 65 Year
  Sex: Male
  Weight: 104.42 kg

DRUGS (5)
  1. ADVIL [Suspect]
     Indication: ARTHRALGIA
     Dosage: 2 CAPSULES DAILY, ORAL
     Route: 048
     Dates: start: 20050501
  2. CELEBREX [Concomitant]
  3. LIPITOR [Concomitant]
  4. PLAVIX [Concomitant]
  5. ACETYLSALICYLIC ACID [Concomitant]

REACTIONS (2)
  - PNEUMONIA [None]
  - RESPIRATORY TRACT CONGESTION [None]
